FAERS Safety Report 5463277-X (Version None)
Quarter: 2007Q3

REPORT INFORMATION
  Report Type: 
  Country: None (occurrence: None)
  Receive Date: 20070920
  Receipt Date: 20070918
  Transmission Date: 20080115
  Serious: Yes (Life-Threatening)
  Sender: FDA-Public Use
  Company Number: B006941

PATIENT
  Age: 35 Year
  Sex: Female

DRUGS (4)
  1. KENALOG-40 [Suspect]
     Indication: RHEUMATOID ARTHRITIS
     Route: 014
     Dates: start: 19880414, end: 19880414
  2. RIDAURA [Concomitant]
     Dates: start: 19880219
  3. VOLTAREN [Concomitant]
     Dates: start: 19880219
  4. XYLOCAINE [Concomitant]
     Dates: start: 19880414, end: 19880414

REACTIONS (6)
  - ANAPHYLACTIC SHOCK [None]
  - HYPERSENSITIVITY [None]
  - JOINT SWELLING [None]
  - PRURITUS [None]
  - RASH MACULAR [None]
  - URTICARIA [None]
